FAERS Safety Report 20454860 (Version 4)
Quarter: 2022Q2

REPORT INFORMATION
  Report Type: Report from Study
  Country: BR (occurrence: BR)
  Receive Date: 20220210
  Receipt Date: 20220512
  Transmission Date: 20220720
  Serious: Yes (Hospitalization, Disabling)
  Sender: FDA-Public Use
  Company Number: BR-ABBVIE-22K-020-4272655-00

PATIENT
  Sex: Female
  Weight: 50 kg

DRUGS (8)
  1. RINVOQ [Suspect]
     Active Substance: UPADACITINIB
     Indication: Rheumatoid arthritis
     Route: 048
  2. RINVOQ [Suspect]
     Active Substance: UPADACITINIB
     Route: 048
     Dates: end: 202204
  3. HUMIRA [Suspect]
     Active Substance: ADALIMUMAB
     Indication: Product used for unknown indication
     Route: 058
  4. AMLODIPINE BESYLATE [Concomitant]
     Active Substance: AMLODIPINE BESYLATE
     Indication: Hypertension
  5. METHOTREXATE [Concomitant]
     Active Substance: METHOTREXATE
     Indication: Rheumatoid arthritis
  6. CALCIUM [Concomitant]
     Active Substance: CALCIUM
     Indication: Product used for unknown indication
  7. VITAMIN D [Concomitant]
     Active Substance: VITAMIN D NOS
     Indication: Product used for unknown indication
  8. VITAMIN B2 [Concomitant]
     Active Substance: RIBOFLAVIN
     Indication: Product used for unknown indication

REACTIONS (20)
  - Gait inability [Unknown]
  - Kidney infection [Recovered/Resolved]
  - Arthralgia [Recovering/Resolving]
  - Osteoporosis [Unknown]
  - Peripheral swelling [Unknown]
  - Pain [Unknown]
  - Vulvovaginal discomfort [Not Recovered/Not Resolved]
  - Vulvovaginal burning sensation [Unknown]
  - Liver disorder [Not Recovered/Not Resolved]
  - Motion sickness [Not Recovered/Not Resolved]
  - Decreased appetite [Recovering/Resolving]
  - Dizziness [Recovering/Resolving]
  - Bacterial infection [Recovering/Resolving]
  - Immunodeficiency [Recovering/Resolving]
  - Asthenia [Recovering/Resolving]
  - Hypersensitivity [Recovered/Resolved]
  - Pruritus [Recovered/Resolved]
  - Headache [Unknown]
  - Herpes virus infection [Recovering/Resolving]
  - Genital herpes [Recovered/Resolved]

NARRATIVE: CASE EVENT DATE: 20170101
